FAERS Safety Report 5109656-1 (Version None)
Quarter: 2006Q3

REPORT INFORMATION
  Report Type: 
  Country: None (occurrence: None)
  Receive Date: 20060918
  Receipt Date: 20060905
  Transmission Date: 20061208
  Serious: Yes (Hospitalization)
  Sender: FDA-Public Use
  Company Number: 229553

PATIENT
  Age: 43 Year
  Sex: Male

DRUGS (12)
  1. MABTHERA(RITUXIMAB) CONC FOR SOLUTION FOR INFUSION [Suspect]
     Indication: RENAL TRANSPLANT
     Dosage: 10 MG/KG, INTRAVENOUS
     Route: 042
     Dates: start: 20060807, end: 20060812
  2. MYCOPHENOLATE MOFETIL [Concomitant]
  3. TACROLIMUS (TACROLIMUS) [Concomitant]
  4. SULFAMETHOXAZOLE + TRIMETHOPRIM [Concomitant]
  5. AMPHOTERICIN LOZENGES (AMPHOTERICIN B) [Concomitant]
  6. OMEPRAZOLE [Concomitant]
  7. RAMIPRIL [Concomitant]
  8. VALGANCICLOVIR HYDROCHLORIDE (VALGANCICLOVIR HYDROCHLORIDE) [Concomitant]
  9. ASPIRIN [Concomitant]
  10. VITAMIN B COMPLEX (VITAMIN B COMPLEX) [Concomitant]
  11. FOLIC ACID [Concomitant]
  12. CIPROFLOXACIN [Concomitant]

REACTIONS (2)
  - BLOOD CREATININE INCREASED [None]
  - TRANSPLANT REJECTION [None]
